FAERS Safety Report 24812122 (Version 1)
Quarter: 2025Q1

REPORT INFORMATION
  Report Type: Spontaneous
  Country: US (occurrence: None)
  Receive Date: 20250106
  Receipt Date: 20250106
  Transmission Date: 20250409
  Serious: Yes (Hospitalization)
  Sender: FDA-CTU
  Company Number: None

PATIENT
  Age: 72 Year
  Sex: Female
  Weight: 55.35 kg

DRUGS (2)
  1. KISUNLA [Suspect]
     Active Substance: DONANEMAB-AZBT
     Indication: Cognitive disorder
     Route: 042
     Dates: start: 20241122, end: 20250103
  2. Sodium Chloride 100 ml [Concomitant]
     Dates: start: 20250103, end: 20250103

REACTIONS (9)
  - Headache [None]
  - Chest discomfort [None]
  - Flushing [None]
  - Nausea [None]
  - Chills [None]
  - Restlessness [None]
  - Infusion related reaction [None]
  - Confusional state [None]
  - Ataxia [None]

NARRATIVE: CASE EVENT DATE: 20250103
